FAERS Safety Report 5781968-8 (Version None)
Quarter: 2008Q2

REPORT INFORMATION
  Report Type: 
  Country: None (occurrence: None)
  Receive Date: 20080623
  Receipt Date: 20080616
  Transmission Date: 20081010
  Serious: Yes (Hospitalization)
  Sender: FDA-Public Use
  Company Number: D0057343A

PATIENT
  Age: 15 Year
  Sex: Female
  Weight: 51 kg

DRUGS (3)
  1. ARIXTRA [Suspect]
     Indication: THROMBOSIS PROPHYLAXIS
     Dosage: 2.5MG PER DAY
     Route: 058
     Dates: start: 20080419, end: 20080426
  2. VOLTAREN [Concomitant]
     Indication: PAIN
     Route: 065
     Dates: start: 20080419, end: 20080422
  3. NOVAMIN [Concomitant]
     Indication: PAIN
     Route: 048
     Dates: start: 20080419, end: 20080422

REACTIONS (7)
  - ARTHRALGIA [None]
  - ERYTHEMA [None]
  - HAEMARTHROSIS [None]
  - JOINT EFFUSION [None]
  - JOINT SWELLING [None]
  - OPERATIVE HAEMORRHAGE [None]
  - SUBCUTANEOUS HAEMATOMA [None]
